FAERS Safety Report 10729067 (Version 1)
Quarter: 2015Q1

REPORT INFORMATION
  Report Type: Spontaneous
  Country: SE (occurrence: SE)
  Receive Date: 20150122
  Receipt Date: 20150122
  Transmission Date: 20150721
  Serious: Yes (Hospitalization)
  Sender: FDA-Public Use
  Company Number: SE-ABBVIE-14K-150-1326547-00

PATIENT
  Age: 78 Year
  Sex: Female

DRUGS (1)
  1. HUMIRA [Suspect]
     Active Substance: ADALIMUMAB
     Indication: RHEUMATOID ARTHRITIS
     Route: 065
     Dates: start: 20140611

REACTIONS (17)
  - Fatigue [Unknown]
  - Limb injury [Unknown]
  - Urine odour abnormal [Unknown]
  - Pain in extremity [Unknown]
  - Urinary tract infection [Unknown]
  - Syncope [Recovered/Resolved]
  - Head injury [Unknown]
  - Nausea [Not Recovered/Not Resolved]
  - Syncope [Unknown]
  - Dizziness [Recovered/Resolved]
  - Fall [Unknown]
  - Dizziness [Recovered/Resolved]
  - Joint injury [Unknown]
  - Fall [Unknown]
  - Pyrexia [Unknown]
  - Upper limb fracture [Unknown]
  - Urosepsis [Unknown]

NARRATIVE: CASE EVENT DATE: 2014
